FAERS Safety Report 5507288-4 (Version None)
Quarter: 2007Q4

REPORT INFORMATION
  Report Type: 
  Country: None (occurrence: None)
  Receive Date: 20071024
  Receipt Date: 20071015
  Transmission Date: 20080405
  Serious: Yes (Death)
  Sender: FDA-Public Use
  Company Number: THYM-11550

PATIENT
  Age: 49 Year
  Sex: Male
  Weight: 85 kg

DRUGS (5)
  1. THYMOGLOBULIN [Suspect]
     Indication: LIVER TRANSPLANT
     Dosage: 1.5 MG/KG QD IV
     Route: 042
     Dates: start: 20050818, end: 20050822
  2. ZOPHREN. MFR: GLAXO LABORATORIES LIMITED [Concomitant]
  3. TRIATEC. MFR: HOECHST PHARMACEUTICALS, INCORPORATED [Concomitant]
  4. PROGRAF [Concomitant]
  5. CELLCEPT. MFR: ROCHE [Concomitant]

REACTIONS (5)
  - BILIARY ANASTOMOSIS COMPLICATION [None]
  - BILIARY DILATATION [None]
  - CHOLESTASIS [None]
  - MULTI-ORGAN FAILURE [None]
  - PANCREATITIS NECROTISING [None]
